FAERS Safety Report 5159527-X (Version None)
Quarter: 2006Q4

REPORT INFORMATION
  Report Type: 
  Country: None (occurrence: None)
  Receive Date: 20061120
  Receipt Date: 20061104
  Transmission Date: 20070319
  Serious: No
  Sender: FDA-Public Use
  Company Number: BR-2006-034057

PATIENT
  Age: 37 Year
  Sex: Female

DRUGS (4)
  1. BETAFERON (INTERFERON BETA -1B) [Suspect]
     Indication: MULTIPLE SCLEROSIS
     Dosage: 8 MIU, EVERY 2D, SUBCUTANEOUS
     Route: 058
     Dates: start: 20030101
  2. AMITRIPTYLINE HCL [Concomitant]
  3. AMANTADINE HCL [Concomitant]
  4. ACETAMINOPHEN [Concomitant]

REACTIONS (6)
  - ASTHENIA [None]
  - INJECTION SITE ERYTHEMA [None]
  - MOOD ALTERED [None]
  - MULTIPLE SCLEROSIS [None]
  - MUSCULAR WEAKNESS [None]
  - OEDEMA PERIPHERAL [None]
